FAERS Safety Report 5903210-7 (Version None)
Quarter: 2008Q3

REPORT INFORMATION
  Report Type: 
  Country: None (occurrence: None)
  Receive Date: 20080930
  Receipt Date: 20080929
  Transmission Date: 20090109
  Serious: Yes (Death, Hospitalization)
  Sender: FDA-Public Use
  Company Number: ES-BRISTOL-MYERS SQUIBB COMPANY-14167977

PATIENT
  Age: 75 Year
  Sex: Female

DRUGS (2)
  1. ERBITUX [Suspect]
     Indication: HEAD AND NECK CANCER
     Dosage: 2-3 ADMINISTRATIONS
     Route: 042
     Dates: start: 20071201, end: 20080101
  2. RADIATION THERAPY [Suspect]
     Dosage: SEVERAL SESSIONS

REACTIONS (4)
  - MUCOSAL INFLAMMATION [None]
  - MULTI-ORGAN FAILURE [None]
  - PEMPHIGOID [None]
  - PNEUMONIA [None]
